FAERS Safety Report 8397064-X (Version None)
Quarter: 2012Q2

REPORT INFORMATION
  Report Type: 
  Country: None (occurrence: None)
  Receive Date: 20120530
  Receipt Date: 20120507
  Transmission Date: 20120825
  Serious: No
  Sender: FDA-Public Use
  Company Number: US-BAYER-2012-048172

PATIENT
  Age: 87 Year
  Sex: Female
  Weight: 82 kg

DRUGS (3)
  1. ALEVE (CAPLET) [Suspect]
     Indication: ARTHRITIS
     Dosage: 1 U, UNK
     Route: 048
     Dates: start: 20120504, end: 20120504
  2. CADUET [Concomitant]
  3. CELEBREX [Concomitant]

REACTIONS (1)
  - POLYURIA [None]
